FAERS Safety Report 10237385 (Version 1)
Quarter: 2014Q2

REPORT INFORMATION
  Report Type: Spontaneous
  Country: JP (occurrence: JP)
  Receive Date: 20140614
  Receipt Date: 20140614
  Transmission Date: 20141212
  Serious: Yes (Other)
  Sender: FDA-Public Use
  Company Number: JP-AMGEN-JPNSP2014044303

PATIENT
  Age: 64 Year
  Sex: Male

DRUGS (1)
  1. VECTIBIX [Suspect]
     Indication: RECTAL CANCER RECURRENT
     Dosage: 100 MG, UNK
     Route: 041

REACTIONS (1)
  - Hypomagnesaemia [Recovering/Resolving]
